FAERS Safety Report 10450820 (Version 1)
Quarter: 2014Q3

REPORT INFORMATION
  Report Type: Spontaneous
  Country: US (occurrence: None)
  Receive Date: 20140910
  Receipt Date: 20140910
  Transmission Date: 20150326
  Serious: Yes (Other)
  Sender: FDA-Public Use
  Company Number: INS201408-000177

PATIENT
  Sex: Female

DRUGS (3)
  1. ACTIQ [Suspect]
     Active Substance: FENTANYL CITRATE
  2. FENTORA [Suspect]
     Active Substance: FENTANYL CITRATE
  3. SUBSYS [Suspect]
     Active Substance: FENTANYL

REACTIONS (3)
  - Drug hypersensitivity [None]
  - Dyspnoea [None]
  - Convulsion [None]
